FAERS Safety Report 24468213 (Version 1)
Quarter: 2024Q4

REPORT INFORMATION
  Report Type: Spontaneous
  Country: US (occurrence: US)
  Receive Date: 20241018
  Receipt Date: 20241018
  Transmission Date: 20250115
  Serious: Yes (Death, Hospitalization, Other)
  Sender: DR REDDYS
  Company Number: US-DRL-USA-LIT/USA/24/0015273

PATIENT
  Age: 37 Year
  Sex: Male

DRUGS (5)
  1. DOXYCYCLINE [Suspect]
     Active Substance: DOXYCYCLINE
     Indication: Endocarditis
  2. DOXYCYCLINE [Suspect]
     Active Substance: DOXYCYCLINE
     Indication: Bartonellosis
  3. RIFAMPIN [Suspect]
     Active Substance: RIFAMPIN
     Indication: Endocarditis
  4. VANCOMYCIN [Concomitant]
     Active Substance: VANCOMYCIN
     Indication: Endocarditis
     Route: 042
  5. CEFEPIME [Concomitant]
     Active Substance: CEFEPIME HYDROCHLORIDE
     Indication: Endocarditis
     Route: 042

REACTIONS (4)
  - Cardiac arrest [Fatal]
  - Renal failure [Fatal]
  - Cardiogenic shock [Fatal]
  - Drug ineffective for unapproved indication [Unknown]
